FAERS Safety Report 5444301-7 (Version None)
Quarter: 2007Q3

REPORT INFORMATION
  Report Type: 
  Country: None (occurrence: None)
  Receive Date: 20070904
  Receipt Date: 20070904
  Transmission Date: 20080115
  Serious: Yes (Hospitalization)
  Sender: FDA-Public Use
  Company Number: None

PATIENT
  Age: 29 Year
  Sex: Female
  Weight: 42.3 kg

DRUGS (2)
  1. MYFORTIC [Suspect]
     Indication: RENAL FAILURE CHRONIC
     Dosage: 540 MG  BID   PO
     Route: 048
     Dates: start: 20070824, end: 20070828
  2. RAPAMUNE [Suspect]
     Indication: RENAL FAILURE CHRONIC
     Dosage: 5 MG  EVERY DAY  PO
     Route: 048
     Dates: start: 20070509, end: 20070828

REACTIONS (2)
  - COUGH [None]
  - PYREXIA [None]
